FAERS Safety Report 20069287 (Version 1)
Quarter: 2021Q4

REPORT INFORMATION
  Report Type: Spontaneous
  Country: NL (occurrence: NL)
  Receive Date: 20211115
  Receipt Date: 20211115
  Transmission Date: 20220303
  Serious: Yes (Hospitalization, Other)
  Sender: FDA-Public Use
  Company Number: NL-TEVA-2021-NL-1942067

PATIENT
  Age: 57 Year
  Sex: Female

DRUGS (8)
  1. DEXAMETHASONE [Suspect]
     Active Substance: DEXAMETHASONE
     Indication: Haemophagocytic lymphohistiocytosis
     Dosage: 10 MILLIGRAM/ START DATE: 2020
     Route: 040
     Dates: end: 2020
  2. PREDNISONE [Suspect]
     Active Substance: PREDNISONE
     Indication: Liver function test abnormal
     Dosage: 2 MILLIGRAM/KILOGRAM/ START DATE: 2020
     Route: 065
  3. PREDNISONE [Suspect]
     Active Substance: PREDNISONE
     Dosage: DOSE WAS REDUCED AND THEN INCREASED/START DATE:2020
     Route: 065
  4. IPILIMUMAB [Suspect]
     Active Substance: IPILIMUMAB
     Indication: Metastatic malignant melanoma
     Dosage: 3 MILLIGRAM/KILOGRAM, Q3W (EVERY 3 WEEKS)/START DATE:FEB-2020
     Route: 065
  5. DEXAMETHASONE [Suspect]
     Active Substance: DEXAMETHASONE
     Indication: Haemophagocytic lymphohistiocytosis
     Dosage: 8 MILLIGRAM, BID (0.5 DAY)/START DATE:2020
     Route: 048
  6. DEXAMETHASONE [Suspect]
     Active Substance: DEXAMETHASONE
     Dosage: 6 MILLIGRAM, BID (0.5 DAY)/ START DATE:2020
     Route: 048
  7. NIVOLUMAB [Suspect]
     Active Substance: NIVOLUMAB
     Indication: Metastatic malignant melanoma
     Dosage: 1 MILLIGRAM/KILOGRAM, Q3W (EVERY 3 WEEKS)/START DATE:FEB-2020
     Route: 065
  8. COTRIMOXAZOLE [Suspect]
     Active Substance: SULFAMETHOXAZOLE\TRIMETHOPRIM
     Indication: Antifungal prophylaxis
     Dosage: START DATE:2020
     Route: 065
     Dates: end: 2020

REACTIONS (5)
  - Weight increased [Unknown]
  - Bone infarction [Unknown]
  - Haemophagocytic lymphohistiocytosis [Recovered/Resolved]
  - Mood swings [Unknown]
  - Drug reaction with eosinophilia and systemic symptoms [Recovering/Resolving]

NARRATIVE: CASE EVENT DATE: 20200101
